FAERS Safety Report 17419162 (Version 1)
Quarter: 2020Q1

REPORT INFORMATION
  Report Type: Spontaneous
  Country: US (occurrence: US)
  Receive Date: 20200214
  Receipt Date: 20200214
  Transmission Date: 20200409
  Serious: Yes (Hospitalization)
  Sender: FDA-Public Use
  Company Number: None

PATIENT
  Age: 51 Year
  Sex: Male
  Weight: 85.05 kg

DRUGS (3)
  1. CLOZAPINE. [Suspect]
     Active Substance: CLOZAPINE
     Indication: SCHIZOPHRENIA
     Route: 048
     Dates: start: 20200110, end: 20200213
  2. DIPHENHYDRAMINE. [Concomitant]
     Active Substance: DIPHENHYDRAMINE
     Dates: start: 20181120
  3. FLUPHENAZINE [Concomitant]
     Active Substance: FLUPHENAZINE
     Dates: start: 20181009

REACTIONS (5)
  - Dehydration [None]
  - Small intestinal obstruction [None]
  - Hyperkalaemia [None]
  - Renal disorder [None]
  - Metabolic acidosis [None]

NARRATIVE: CASE EVENT DATE: 20200210
